FAERS Safety Report 8095101-3 (Version None)
Quarter: 2012Q1

REPORT INFORMATION
  Report Type: 
  Country: None (occurrence: None)
  Receive Date: 20120125
  Receipt Date: 20120110
  Transmission Date: 20120608
  Serious: Yes (Other)
  Sender: FDA-Public Use
  Company Number: US-1189126

PATIENT
  Age: 70 Year
  Sex: Female
  Weight: 58.9676 kg

DRUGS (8)
  1. NEVANAC [Suspect]
     Indication: CATARACT OPERATION
     Dosage: (OPHTHALMIC)
     Route: 047
  2. BSS [Suspect]
     Indication: CATARACT OPERATION
     Dosage: (INTRAOCULAR) ; (INTRAOCULAR)
     Route: 031
     Dates: start: 20111115, end: 20111115
  3. BSS [Suspect]
     Indication: CATARACT OPERATION
     Dosage: (INTRAOCULAR) ; (INTRAOCULAR)
     Route: 031
     Dates: start: 20111115, end: 20111115
  4. TETRACAINE POLYGYL STERILE OPHTHALMIC SOLUTION [Suspect]
     Indication: CATARACT OPERATION
     Dosage: (OPHTHALMIC)
     Route: 047
     Dates: start: 20111115, end: 20111115
  5. OMNIPRED [Suspect]
     Indication: CATARACT OPERATION
     Dosage: (OPHTHALMIC)
     Route: 047
  6. BSS [Suspect]
  7. VIGAMOX [Suspect]
     Indication: CATARACT OPERATION
     Dosage: (OPHTHALMIC)
     Route: 047
  8. POVIDONE IODINE [Concomitant]

REACTIONS (2)
  - OFF LABEL USE [None]
  - TOXIC ANTERIOR SEGMENT SYNDROME [None]
